FAERS Safety Report 6288341-7 (Version None)
Quarter: 2009Q3

REPORT INFORMATION
  Report Type: 
  Country: None (occurrence: None)
  Receive Date: 20090729
  Receipt Date: 20090717
  Transmission Date: 20100115
  Serious: Yes (Hospitalization)
  Sender: FDA-Public Use
  Company Number: PHHY2009DE30258

PATIENT
  Age: 48 Year
  Sex: Male
  Weight: 75 kg

DRUGS (17)
  1. MYFORTIC [Suspect]
     Indication: RENAL TRANSPLANT
     Dosage: 180 MG, BID
     Route: 048
     Dates: start: 20040101, end: 20090623
  2. PROGRAF [Suspect]
     Indication: RENAL TRANSPLANT
     Dosage: 1.5 MG, BID
     Route: 048
     Dates: start: 20040101
  3. PROGRAF [Suspect]
     Dosage: 2 MG, BID
     Dates: start: 20090605
  4. PROGRAF [Suspect]
     Dosage: 2.5 MG, BID
     Dates: start: 20090611
  5. PROGRAF [Suspect]
     Dosage: 5.5 MG DAILY
     Dates: start: 20090617
  6. CALCILAC KT [Concomitant]
     Indication: CALCIUM DEFICIENCY
     Dosage: 1 DF, BID
     Route: 048
     Dates: start: 20030101
  7. CIPROBAY [Concomitant]
     Indication: INFECTION
     Dosage: UNK
     Route: 048
     Dates: start: 20090527, end: 20090623
  8. DELMUNO [Concomitant]
     Indication: HYPERTENSION
     Dosage: 1 DF, QD
     Route: 048
     Dates: start: 20040101
  9. FALITHROM [Concomitant]
     Indication: HEART VALVE REPLACEMENT
     Dosage: 1.5 MG, QD
     Route: 048
     Dates: start: 20030101
  10. ISCOVER [Concomitant]
     Indication: HEART VALVE REPLACEMENT
     Dosage: 75 MG, QD
     Dates: start: 20040101
  11. MAGNESIUM [Concomitant]
     Indication: MAGNESIUM DEFICIENCY
     Dosage: 100 MG, BID
     Route: 048
     Dates: start: 20030101
  12. METHYLPREDNISOLONE [Concomitant]
     Indication: RENAL TRANSPLANT
     Dosage: 4 MG, QD
     Route: 048
     Dates: start: 19950101
  13. METOPROLOL [Concomitant]
     Indication: HYPERTENSION
     Dosage: 47.5 MG, BID
     Route: 048
     Dates: start: 20030101
  14. OMEP [Concomitant]
     Indication: PROPHYLAXIS AGAINST GASTROINTESTINAL ULCER
     Dosage: 40 MG, QD
     Route: 048
     Dates: start: 20040101
  15. TRAMADOL [Concomitant]
     Indication: PAIN
     Dosage: 50 MG, QD
     Route: 048
  16. XIPAMIDE [Concomitant]
     Indication: HYPERTENSION
     Dosage: 10 MG, QD
     Route: 048
     Dates: end: 20090609
  17. INFLUENZA VACCINE [Concomitant]

REACTIONS (12)
  - ABDOMINAL PAIN [None]
  - C-REACTIVE PROTEIN INCREASED [None]
  - CELLULITIS [None]
  - CHILLS [None]
  - COLITIS ULCERATIVE [None]
  - DECREASED APPETITE [None]
  - DIARRHOEA [None]
  - FAECES DISCOLOURED [None]
  - INFECTION [None]
  - LARGE INTESTINAL ULCER [None]
  - MUCOUS STOOLS [None]
  - PYREXIA [None]
